FAERS Safety Report 6179631-7 (Version None)
Quarter: 2009Q2

REPORT INFORMATION
  Report Type: 
  Country: None (occurrence: None)
  Receive Date: 20090505
  Receipt Date: 20090428
  Transmission Date: 20091009
  Serious: Yes (Other)
  Sender: FDA-Public Use
  Company Number: JP-MERCK-0901USA03623

PATIENT
  Age: 24 Month
  Sex: Female
  Weight: 12 kg

DRUGS (8)
  1. SINGULAIR [Suspect]
     Indication: WHEEZING
     Route: 048
     Dates: start: 20081230, end: 20090101
  2. PERIACTIN [Concomitant]
     Indication: RHINORRHOEA
     Route: 048
     Dates: start: 20081230, end: 20090106
  3. THEO-DUR [Concomitant]
     Route: 048
     Dates: start: 20081230, end: 20090105
  4. MUCODYNE [Concomitant]
     Indication: SPUTUM RETENTION
     Route: 048
     Dates: start: 20081230, end: 20090106
  5. MUCOSAL [Concomitant]
     Indication: SPUTUM RETENTION
     Route: 048
     Dates: start: 20081230, end: 20090106
  6. NEUZYM [Concomitant]
     Indication: SPUTUM RETENTION
     Route: 048
     Dates: start: 20081230, end: 20090106
  7. HOKUNALIN [Concomitant]
     Indication: ASTHMA
     Route: 058
     Dates: start: 20081226, end: 20090102
  8. ONON [Concomitant]
     Indication: HYPERSENSITIVITY
     Route: 048
     Dates: start: 20081230, end: 20081230

REACTIONS (2)
  - PYREXIA [None]
  - TACHYCARDIA [None]
